FAERS Safety Report 9887743 (Version 1)
Quarter: 2014Q1

REPORT INFORMATION
  Report Type: Spontaneous
  Country: US (occurrence: US)
  Receive Date: 20140211
  Receipt Date: 20140211
  Transmission Date: 20141002
  Serious: Yes (Hospitalization, Other)
  Sender: FDA-Public Use
  Company Number: US-PAR PHARMACEUTICAL, INC-2014SCPR008896

PATIENT
  Sex: 0

DRUGS (2)
  1. FENTANYL TRANSDERMAL SYSTEM [Suspect]
     Indication: PRODUCT USED FOR UNKNOWN INDICATION
     Dosage: UNK, UNKNOWN, INHALATION
  2. ROBITUSSIN /00048001/ [Suspect]
     Indication: PRODUCT USED FOR UNKNOWN INDICATION
     Dosage: 18 DF, UNKNOWN
     Route: 065

REACTIONS (6)
  - Loss of consciousness [Recovered/Resolved]
  - Incorrect route of drug administration [Unknown]
  - Intentional drug misuse [Recovered/Resolved]
  - Overdose [Recovered/Resolved]
  - Cyanosis [Recovered/Resolved]
  - Dyspnoea [Recovered/Resolved]
